FAERS Safety Report 17613880 (Version 1)
Quarter: 2020Q3

REPORT INFORMATION
  Report Type: Spontaneous
  Country: US (occurrence: US)
  Receive Date: 20200402
  Receipt Date: 20200402
  Transmission Date: 20201105
  Serious: Yes (Congenital Anomaly, Other)
  Sender: FDA-Public Use
  Company Number: US-ABBVIE-20P-163-3319328-00

PATIENT
  Age: 1 Year
  Sex: Male
  Weight: .6 kg

DRUGS (13)
  1. SODIUM CHLORIDE. [Suspect]
     Active Substance: SODIUM CHLORIDE
     Indication: PRODUCT USED FOR UNKNOWN INDICATION
     Dosage: 0.9 % INHALATION SOLUTION, EVERY 4 HRS PRN / 3% IS 0.12 G/M=4 ML, EVERY 4 HOUR...
     Route: 065
  2. CAPTORIL [Suspect]
     Active Substance: CAPTOPRIL
     Indication: PRODUCT USED FOR UNKNOWN INDICATION
     Dosage: 5 MG TID, 5MG (1ML) Q 8HRS
     Route: 048
  3. ACETAMINOPHEN. [Suspect]
     Active Substance: ACETAMINOPHEN
     Indication: PRODUCT USED FOR UNKNOWN INDICATION
     Dosage: 128MG*4ML, PRN, G?TUBE Q4H
     Route: 048
  4. OMEPRAZOLE. [Suspect]
     Active Substance: OMEPRAZOLE
     Indication: PRODUCT USED FOR UNKNOWN INDICATION
     Dosage: 2MG/ML SUSPENSION 10MG*5ML, G?TUBE, DAILY
     Route: 048
  5. SYNAGIS [Suspect]
     Active Substance: PALIVIZUMAB
     Dosage: MANUFACTURER: SOBI
     Route: 030
     Dates: start: 20191017
  6. STERILE WATER FOR INJECTION [Suspect]
     Active Substance: WATER
     Indication: MECHANICAL VENTILATION
     Dosage: INJECTABLE SOLUTION 2?3 ML
     Route: 065
  7. ALBUTEROL. [Suspect]
     Active Substance: ALBUTEROL
     Indication: PRODUCT USED FOR UNKNOWN INDICATION
     Dosage: 2.5 MG/3ML (0.083%) INHALANTION SOLUTION PRN 2.5ML*3ML, PRN, NED INHAL BID
     Route: 065
  8. SULFAMETHOXAZOLE AND TRIMETHOPRIM [Suspect]
     Active Substance: SULFAMETHOXAZOLE\TRIMETHOPRIM
     Indication: PRODUCT USED FOR UNKNOWN INDICATION
     Dosage: 200MG?40NG/5ML, 6 ML, G?TUBE, BID
     Route: 048
  9. FLUTICASONE HFA [Suspect]
     Active Substance: FLUTICASONE
     Indication: PRODUCT USED FOR UNKNOWN INDICATION
     Dosage: 110MCG/INH 2 PUFF, IHALATION, BID
     Route: 065
  10. SYNAGIS [Suspect]
     Active Substance: PALIVIZUMAB
     Indication: BRONCHOPULMONARY DYSPLASIA
     Dosage: MANUFACTURER: SOBI
     Route: 030
     Dates: start: 20191001
  11. FERROUS SULFATE. [Suspect]
     Active Substance: FERROUS SULFATE
     Indication: PRODUCT USED FOR UNKNOWN INDICATION
     Dosage: 15 MG ELEMENTAL IRON / LIQUID 22.5MG*1.5ML, G?TUBE, BID
     Route: 048
  12. SIMETHICONE (DIMETHICONE) [Suspect]
     Active Substance: DIMETHICONE
     Indication: PRODUCT USED FOR UNKNOWN INDICATION
     Dosage: 40MG/0.6ML, 20MG=0.3ML, G?TUBE, 4 TIMES DAILY, AS NEEDED
     Route: 048
  13. LOPERAMIDE [Suspect]
     Active Substance: LOPERAMIDE
     Indication: PRODUCT USED FOR UNKNOWN INDICATION
     Dosage: 1MG/7.5ML, 05333MG= 4ML PRN, G?TUBE, BID
     Route: 048

REACTIONS (9)
  - Electrolyte imbalance [Recovered/Resolved]
  - Intestinal mass [Unknown]
  - Dehydration [Recovering/Resolving]
  - Otitis media [Unknown]
  - Hypernatraemia [Recovering/Resolving]
  - Chronic respiratory failure [Unknown]
  - Fatigue [Recovering/Resolving]
  - Tachycardia [Recovering/Resolving]
  - Diarrhoea [Recovered/Resolved]

NARRATIVE: CASE EVENT DATE: 202003
